FAERS Safety Report 4418091-0 (Version None)
Quarter: 2004Q3

REPORT INFORMATION
  Report Type: 
  Country: None (occurrence: None)
  Receive Date: 20040803
  Receipt Date: 20040720
  Transmission Date: 20050211
  Serious: Yes (Death)
  Sender: FDA-Public Use
  Company Number: US-JNJFOC-20040706589

PATIENT
  Age: 54 Year
  Sex: Female
  Weight: 57.1532 kg

DRUGS (4)
  1. REMICADE [Suspect]
     Indication: RHEUMATOID ARTHRITIS
     Dosage: 5 MG/KG INTRAVENOUS
     Route: 042
     Dates: start: 20020201, end: 20030201
  2. METHOTREXATE [Concomitant]
  3. INSULIN [Concomitant]
  4. ALTACE [Concomitant]

REACTIONS (1)
  - OVARIAN CANCER [None]
